FAERS Safety Report 9501801 (Version 1)
Quarter: 2013Q3

REPORT INFORMATION
  Report Type: Spontaneous
  Country: BE (occurrence: BE)
  Receive Date: 20130905
  Receipt Date: 20130905
  Transmission Date: 20140515
  Serious: Yes (Death)
  Sender: FDA-Public Use
  Company Number: BE-B.I. PHARMACEUTICALS,INC./RIDGEFIELD-2013-BI-27438BL

PATIENT
  Age: 75 Year
  Sex: Female

DRUGS (1)
  1. PRADAXA [Suspect]
     Indication: PROPHYLAXIS
     Dosage: 220 MG

REACTIONS (1)
  - Cerebral haemorrhage [Fatal]
